FAERS Safety Report 4659949-7 (Version None)
Quarter: 2005Q2

REPORT INFORMATION
  Report Type: 
  Country: None (occurrence: None)
  Receive Date: 20050502
  Receipt Date: 20050131
  Transmission Date: 20051028
  Serious: Yes (Hospitalization)
  Sender: FDA-Public Use
  Company Number: US_0502112005

PATIENT
  Age: 23 Year
  Sex: Female
  Weight: 77 kg

DRUGS (2)
  1. SYMBYAX [Suspect]
  2. WELLBUTRIN [Concomitant]

REACTIONS (1)
  - CONVULSION [None]
